FAERS Safety Report 5866740-2 (Version None)
Quarter: 2008Q3

REPORT INFORMATION
  Report Type: 
  Country: None (occurrence: None)
  Receive Date: 20080828
  Receipt Date: 20080828
  Transmission Date: 20090109
  Serious: Yes (Death, Life-Threatening, Hospitalization, Other)
  Sender: FDA-Public Use
  Company Number: None

PATIENT
  Age: 88 Year
  Sex: Male
  Weight: 74.8435 kg

DRUGS (1)
  1. HALDOL [Suspect]
     Dates: start: 20060118, end: 20060120

REACTIONS (13)
  - AGGRESSION [None]
  - AGITATION [None]
  - CRYING [None]
  - DRUG INTOLERANCE [None]
  - HEARING IMPAIRED [None]
  - HYPOPHAGIA [None]
  - ILL-DEFINED DISORDER [None]
  - PATIENT RESTRAINT [None]
  - PNEUMONIA [None]
  - SCREAMING [None]
  - THIRST [None]
  - TREMOR [None]
  - VERBIGERATION [None]
